FAERS Safety Report 23814801 (Version 3)
Quarter: 2025Q1

REPORT INFORMATION
  Report Type: Other
  Country: CA (occurrence: CA)
  Receive Date: 20240503
  Receipt Date: 20250320
  Transmission Date: 20250409
  Serious: No
  Sender: TOLMAR
  Company Number: CA-TOLMAR, INC.-24CA048007

PATIENT
  Age: 71 Year
  Sex: Male

DRUGS (4)
  1. ELIGARD [Suspect]
     Active Substance: LEUPROLIDE ACETATE
     Indication: Prostate cancer
     Dosage: 45 MILLIGRAM, Q 6 MONTH
     Route: 058
     Dates: start: 20231009
  2. ELIGARD [Suspect]
     Active Substance: LEUPROLIDE ACETATE
     Dosage: 45 MILLIGRAM, Q 6 MONTH
     Route: 058
     Dates: start: 20240325
  3. ELIGARD [Suspect]
     Active Substance: LEUPROLIDE ACETATE
     Dosage: 45 MILLIGRAM, Q 6 MONTH
     Route: 058
     Dates: start: 20240909
  4. ELIGARD [Suspect]
     Active Substance: LEUPROLIDE ACETATE
     Dosage: 45 MILLIGRAM, Q 6 MONTH
     Route: 058
     Dates: start: 20250224

REACTIONS (6)
  - Injection site pain [Recovered/Resolved]
  - Hot flush [Not Recovered/Not Resolved]
  - Weight increased [Unknown]
  - Breast enlargement [Unknown]
  - Hyperhidrosis [Recovered/Resolved]
  - Arthralgia [Unknown]

NARRATIVE: CASE EVENT DATE: 20231101
